FAERS Safety Report 7861139-1 (Version None)
Quarter: 2011Q4

REPORT INFORMATION
  Report Type: 
  Country: None (occurrence: None)
  Receive Date: 20111027
  Receipt Date: 20111017
  Transmission Date: 20120403
  Serious: Yes (Life-Threatening, Other)
  Sender: FDA-Public Use
  Company Number: US-BAYER-2011-002747

PATIENT
  Age: 24 Year
  Sex: Female
  Weight: 66.213 kg

DRUGS (4)
  1. YASMIN [Suspect]
     Indication: ORAL CONTRACEPTION
     Dosage: UNK
     Route: 048
     Dates: start: 20050101, end: 20060101
  2. DROSPIRENONE AND ETHINYL ESTRADIOL [Suspect]
     Indication: ORAL CONTRACEPTION
     Dosage: UNK
     Route: 048
     Dates: start: 20080101, end: 20090101
  3. PHENERGAN HCL [Concomitant]
     Dosage: 25 MG, UNK
  4. BENTYL [Concomitant]
     Dosage: 20 MG, TID
     Route: 048

REACTIONS (7)
  - CHOLECYSTITIS CHRONIC [None]
  - FATIGUE [None]
  - ORGAN FAILURE [None]
  - PAIN [None]
  - ANXIETY [None]
  - EMOTIONAL DISTRESS [None]
  - GALLBLADDER NON-FUNCTIONING [None]
